FAERS Safety Report 5314228-X (Version None)
Quarter: 2007Q2

REPORT INFORMATION
  Report Type: 
  Country: None (occurrence: None)
  Receive Date: 20070426
  Receipt Date: 20070413
  Transmission Date: 20071010
  Serious: Yes (Other)
  Sender: FDA-Public Use
  Company Number: B0464736A

PATIENT
  Sex: Male
  Weight: 3.4927 kg

DRUGS (9)
  1. PAXIL [Suspect]
     Indication: DRUG USE FOR UNKNOWN INDICATION
     Dosage: 10 MG; TWICE PER DAY/TRANSPLACEN
     Route: 064
     Dates: start: 20040330
  2. HALOPERIDOL [Suspect]
     Indication: DRUG USE FOR UNKNOWN INDICATION
     Dosage: 75 MG; TWICE PER DAY/TRANSPLACEN
     Route: 064
     Dates: start: 20040330
  3. VALPROIC ACID [Suspect]
     Indication: DRUG USE FOR UNKNOWN INDICATION
     Dosage: 200 MG; TWICE PER DAY/ TRANSPLACEN
     Route: 064
     Dates: start: 20040330
  4. CLOTIAZEPAM [Concomitant]
  5. PARACETAMOL [Concomitant]
  6. CHINESE MEDICATION [Concomitant]
  7. SUCRALFATE [Concomitant]
  8. FAMOTIDINE [Concomitant]
  9. AZULENE [Concomitant]

REACTIONS (14)
  - ACIDOSIS [None]
  - BLOOD GASES ABNORMAL [None]
  - BLOOD PH DECREASED [None]
  - DRUG EXPOSURE DURING PREGNANCY [None]
  - DRUG WITHDRAWAL SYNDROME NEONATAL [None]
  - HAEMATEMESIS [None]
  - HAEMOPTYSIS [None]
  - INTERCOSTAL RETRACTION [None]
  - IRRITABILITY [None]
  - NASAL DISORDER [None]
  - NEONATAL TACHYPNOEA [None]
  - NICOTINE DEPENDENCE [None]
  - RESPIRATORY DISORDER NEONATAL [None]
  - RESTLESSNESS [None]
